APPROVED DRUG PRODUCT: GABAPENTIN
Active Ingredient: GABAPENTIN
Strength: 400MG
Dosage Form/Route: CAPSULE;ORAL
Application: A078150 | Product #003
Applicant: HIKMA PHARMACEUTICALS
Approved: Sep 25, 2007 | RLD: No | RS: No | Type: DISCN